FAERS Safety Report 5611671-6 (Version None)
Quarter: 2008Q1

REPORT INFORMATION
  Report Type: 
  Country: None (occurrence: None)
  Receive Date: 20080201
  Receipt Date: 20080111
  Transmission Date: 20080703
  Serious: Yes (Other)
  Sender: FDA-Public Use
  Company Number: IT-AMGEN-UK240183

PATIENT
  Sex: Female

DRUGS (12)
  1. PANITUMUMAB [Suspect]
     Indication: COLORECTAL CANCER
     Route: 042
     Dates: start: 20070725
  2. OXALIPLATIN [Suspect]
  3. FLUOROURACIL [Concomitant]
     Route: 065
  4. LEUCOVORIN CALCIUM [Concomitant]
     Route: 065
  5. ZANTAC [Concomitant]
     Route: 042
     Dates: start: 20070725, end: 20070808
  6. HYDROCORTISONE [Concomitant]
     Route: 042
     Dates: start: 20070725, end: 20070808
  7. NAVOBAN [Concomitant]
     Route: 042
     Dates: start: 20070725, end: 20070808
  8. KYTRIL [Concomitant]
     Dates: start: 20070727, end: 20070731
  9. IMODIUM [Concomitant]
     Dates: start: 20070727, end: 20070731
  10. ATARAX [Concomitant]
     Dates: start: 20070725, end: 20070808
  11. BENZYDAMINE HYDROCHLORIDE [Concomitant]
     Route: 048
     Dates: start: 20070808
  12. HYDROCHLOROTHIAZIDE/VALSARTAN [Concomitant]
     Route: 048
     Dates: start: 19920101

REACTIONS (5)
  - APHASIA [None]
  - DYSPNOEA [None]
  - HYPERSENSITIVITY [None]
  - LARYNGEAL OEDEMA [None]
  - PARAESTHESIA [None]
